FAERS Safety Report 7247361-6 (Version None)
Quarter: 2011Q1

REPORT INFORMATION
  Report Type: 
  Country: None (occurrence: None)
  Receive Date: 20110127
  Receipt Date: 20110120
  Transmission Date: 20110831
  Serious: Yes (Other)
  Sender: FDA-Public Use
  Company Number: JP-PFIZER INC-2011014589

PATIENT
  Age: 75 Year
  Sex: Male

DRUGS (10)
  1. MORPHINE HYDROCHLORIDE [Concomitant]
     Dosage: 10 MG, A DAY
     Route: 048
  2. LASIX [Concomitant]
     Dosage: 20 MG, A DAY
     Route: 048
  3. PLAVIX [Concomitant]
     Dosage: 75 MG, A DAY
     Route: 048
  4. LASIX [Concomitant]
     Dosage: 40 MG, A DAY
     Route: 048
  5. BLOPRESS [Concomitant]
     Dosage: 12 MG, A DAY
     Route: 048
  6. LYRICA [Suspect]
     Dosage: 150 MG, A DAY
     Route: 048
     Dates: start: 20110113
  7. ALOSENN [Concomitant]
     Dosage: 3 PACKS, A DAY
     Route: 048
  8. FENTANYL [Concomitant]
     Dosage: 8.4 MG, A DAY
     Route: 062
  9. GASTER [Concomitant]
     Dosage: 20 MG, A DAY
     Route: 048
  10. NITRODERM [Concomitant]
     Dosage: 25 MG, A DAY
     Route: 062

REACTIONS (1)
  - COGNITIVE DISORDER [None]
